FAERS Safety Report 13181122 (Version 1)
Quarter: 2017Q1

REPORT INFORMATION
  Report Type: Spontaneous
  Country: US (occurrence: US)
  Receive Date: 20170202
  Receipt Date: 20170202
  Transmission Date: 20170428
  Serious: No
  Sender: FDA-Public Use
  Company Number: US-SMITH AND NEPHEW, INC-2016SMT00767

PATIENT
  Age: 52 Year
  Sex: Female
  Weight: 110.2 kg

DRUGS (7)
  1. REGRANEX [Suspect]
     Active Substance: BECAPLERMIN
     Indication: WOUND
     Dosage: UNK UNK, 2X/WEEK
     Route: 061
     Dates: start: 20160803
  2. FLORASTOR [Concomitant]
     Active Substance: SACCHAROMYCES CEREVISIAE
  3. LASIX [Concomitant]
     Active Substance: FUROSEMIDE
  4. HYDROCODONE [Concomitant]
     Active Substance: HYDROCODONE
  5. UNSPECIFIED LAXATIVE [Concomitant]
  6. VITAMIN D [Concomitant]
     Active Substance: CHOLECALCIFEROL
  7. IRON [Concomitant]
     Active Substance: IRON

REACTIONS (3)
  - Skin burning sensation [Not Recovered/Not Resolved]
  - Drug ineffective for unapproved indication [Not Recovered/Not Resolved]
  - Inappropriate schedule of drug administration [Unknown]

NARRATIVE: CASE EVENT DATE: 201608
